FAERS Safety Report 9788387 (Version 1)
Quarter: 2013Q4

REPORT INFORMATION
  Report Type: Spontaneous
  Country: IT (occurrence: IT)
  Receive Date: 20131230
  Receipt Date: 20131230
  Transmission Date: 20140711
  Serious: Yes (Other)
  Sender: FDA-Public Use
  Company Number: IT-EISAI INC-E3810-06838-SPO-IT

PATIENT
  Age: 65 Year
  Sex: Female

DRUGS (3)
  1. PARIET (RABEPRAZOLE) [Suspect]
     Indication: GASTROOESOPHAGEAL REFLUX DISEASE
     Route: 048
     Dates: start: 20130618, end: 20130619
  2. LEVOTHYROXINE SODIUM [Concomitant]
     Dosage: UNKNOWN
     Route: 065
  3. CO-DIOVAN [Concomitant]
     Dosage: UNKNOWN
     Route: 065

REACTIONS (7)
  - Bronchospasm [Recovered/Resolved]
  - Paraesthesia [Recovered/Resolved]
  - Bronchitis [Unknown]
  - Cough [Recovered/Resolved]
  - Oedema [Recovered/Resolved]
  - Rash [Unknown]
  - Hypersensitivity [Unknown]
